FAERS Safety Report 15684052 (Version 1)
Quarter: 2018Q4

REPORT INFORMATION
  Report Type: Spontaneous
  Country: None (occurrence: US)
  Receive Date: 20181204
  Receipt Date: 20181204
  Transmission Date: 20190205
  Serious: Yes (Hospitalization)
  Sender: FDA-Public Use
  Company Number: US-AUROBINDO-AUR-APU-2018-018841

PATIENT

DRUGS (1)
  1. TORSEMIDE TABLETS 10 MG [Suspect]
     Active Substance: TORSEMIDE

REACTIONS (1)
  - Dehydration [None]
